FAERS Safety Report 15906191 (Version 1)
Quarter: 2019Q1

REPORT INFORMATION
  Report Type: Spontaneous
  Country: CN (occurrence: CN)
  Receive Date: 20190204
  Receipt Date: 20190204
  Transmission Date: 20190417
  Serious: Yes (Hospitalization)
  Sender: FDA-Public Use
  Company Number: PHHY2019CN022075

PATIENT
  Age: 25 Year
  Sex: Male

DRUGS (3)
  1. CARBAMAZEPINE. [Suspect]
     Active Substance: CARBAMAZEPINE
     Indication: SCHIZOPHRENIA
     Dosage: 0.2 G, TID
     Route: 048
  2. OLANZAPINE. [Suspect]
     Active Substance: OLANZAPINE
     Indication: SCHIZOPHRENIA
     Dosage: 5 MG, QN
     Route: 048
  3. QUETIAPINE. [Suspect]
     Active Substance: QUETIAPINE
     Indication: SCHIZOPHRENIA
     Dosage: 0.2 G, QN
     Route: 048

REACTIONS (9)
  - Blister [Recovering/Resolving]
  - Tonsillar inflammation [Unknown]
  - Hypersensitivity [Recovering/Resolving]
  - Respiratory tract congestion [Unknown]
  - Toxic epidermal necrolysis [Recovering/Resolving]
  - Drug eruption [Recovering/Resolving]
  - Ulcer [Unknown]
  - Purulent discharge [Unknown]
  - Lip swelling [Unknown]
